FAERS Safety Report 24596032 (Version 2)
Quarter: 2025Q1

REPORT INFORMATION
  Report Type: Spontaneous
  Country: CA (occurrence: CA)
  Receive Date: 20241109
  Receipt Date: 20250221
  Transmission Date: 20250409
  Serious: Yes (Other)
  Sender: SANOFI AVENTIS
  Company Number: CA-SA-2024SA323451

PATIENT
  Age: 4 Year
  Sex: Male

DRUGS (3)
  1. DUPILUMAB [Suspect]
     Active Substance: DUPILUMAB
     Indication: Gastroenteritis eosinophilic
  2. KETOTIFEN [Suspect]
     Active Substance: KETOTIFEN
     Indication: Gastroenteritis eosinophilic
  3. MONTELUKAST [Suspect]
     Active Substance: MONTELUKAST
     Indication: Gastroenteritis eosinophilic

REACTIONS (5)
  - Somnolence [Unknown]
  - Flushing [Unknown]
  - Headache [Unknown]
  - Drug ineffective [Unknown]
  - Off label use [Unknown]
